FAERS Safety Report 16794798 (Version 3)
Quarter: 2019Q3

REPORT INFORMATION
  Report Type: Spontaneous
  Country: US (occurrence: US)
  Receive Date: 20190911
  Receipt Date: 20190919
  Transmission Date: 20191005
  Serious: No
  Sender: FDA-Public Use
  Company Number: US-PFIZER INC-2019389444

PATIENT
  Age: 59 Year
  Sex: Female

DRUGS (3)
  1. FLEXERIL [Concomitant]
     Active Substance: CYCLOBENZAPRINE HYDROCHLORIDE
     Indication: NECK PAIN
     Dosage: 10 MG, 1X/DAY (TAKING IT AT BED TIME  )
  2. PREMPRO [Suspect]
     Active Substance: ESTROGENS, CONJUGATED\MEDROXYPROGESTERONE ACETATE
     Indication: HOT FLUSH
     Dosage: 0.625 MG, 1X/DAY
     Route: 048
  3. PREMPRO [Suspect]
     Active Substance: ESTROGENS, CONJUGATED\MEDROXYPROGESTERONE ACETATE
     Indication: VULVOVAGINAL DRYNESS

REACTIONS (2)
  - Headache [Unknown]
  - Feeling abnormal [Unknown]
